FAERS Safety Report 10378050 (Version 1)
Quarter: 2014Q3

REPORT INFORMATION
  Report Type: Spontaneous
  Country: US (occurrence: None)
  Receive Date: 20140811
  Receipt Date: 20140811
  Transmission Date: 20150326
  Serious: Yes (Hospitalization)
  Sender: FDA-Public Use
  Company Number: None

PATIENT
  Age: 63 Year
  Sex: Male
  Weight: 42.18 kg

DRUGS (17)
  1. RPOPANOLOL [Concomitant]
  2. OCTREOTIDE [Concomitant]
     Active Substance: OCTREOTIDE
  3. RIFAXMIN [Concomitant]
  4. LASIX [Concomitant]
     Active Substance: FUROSEMIDE
  5. SOFOSBUVIR [Suspect]
     Active Substance: SOFOSBUVIR
     Indication: HEPATITIS C
     Route: 048
     Dates: start: 20140312, end: 20140530
  6. AMILORIDE [Concomitant]
     Active Substance: AMILORIDE
  7. ULTRAM [Concomitant]
     Active Substance: TRAMADOL HYDROCHLORIDE
  8. CEFPODOXIM [Concomitant]
  9. CARMOL [Concomitant]
  10. PRILOSEC [Concomitant]
     Active Substance: OMEPRAZOLE MAGNESIUM
  11. ZINC [Concomitant]
     Active Substance: ZINC\ZINC CHLORIDE
  12. ALBUMIN [Concomitant]
     Active Substance: ALBUMIN (HUMAN)
  13. LANTUS [Concomitant]
     Active Substance: INSULIN GLARGINE
  14. MIDODRINE [Concomitant]
     Active Substance: MIDODRINE
  15. LACTULOSE. [Concomitant]
     Active Substance: LACTULOSE
  16. CLOBETASOL [Concomitant]
     Active Substance: CLOBETASOL
  17. RIBAVIRIN. [Suspect]
     Active Substance: RIBAVIRIN
     Indication: HEPATITIS C
     Route: 048
     Dates: start: 20140512, end: 20140525

REACTIONS (5)
  - Hypoglycaemia [None]
  - Renal failure acute [None]
  - Haemolytic anaemia [None]
  - Mental status changes [None]
  - Hepatic encephalopathy [None]

NARRATIVE: CASE EVENT DATE: 20140522
